FAERS Safety Report 5318307-2 (Version None)
Quarter: 2007Q2

REPORT INFORMATION
  Report Type: 
  Country: None (occurrence: None)
  Receive Date: 20070507
  Receipt Date: 20070426
  Transmission Date: 20071010
  Serious: Yes (Hospitalization)
  Sender: FDA-Public Use
  Company Number: US-SANOFI-SYNTHELABO-A03200702756

PATIENT
  Sex: Male
  Weight: 81.63 kg

DRUGS (14)
  1. VITAMIN E [Concomitant]
     Route: 048
  2. ASCORBIC ACID [Concomitant]
     Route: 048
  3. FOLIC ACID [Concomitant]
     Route: 048
  4. NIACIN [Concomitant]
     Route: 048
  5. K-DUR 10 [Concomitant]
     Route: 048
  6. LIPITOR [Concomitant]
     Route: 048
  7. ASPIRIN [Concomitant]
     Route: 048
  8. ATENOLOL [Concomitant]
     Route: 048
  9. DOXAZOSIN MESYLATE [Concomitant]
     Route: 048
  10. COZAAR [Concomitant]
     Route: 048
  11. PLAVIX [Suspect]
     Indication: ANGIOPLASTY
     Route: 048
     Dates: start: 20060701, end: 20070425
  12. PLAVIX [Suspect]
     Indication: STENT PLACEMENT
     Route: 048
     Dates: start: 20060701, end: 20070425
  13. PLAVIX [Suspect]
     Route: 048
     Dates: start: 20060409, end: 20060701
  14. PLAVIX [Suspect]
     Route: 048
     Dates: start: 20060409, end: 20060701

REACTIONS (2)
  - DYSPNOEA [None]
  - PLEURAL EFFUSION [None]
